FAERS Safety Report 4314145-8 (Version None)
Quarter: 2004Q1

REPORT INFORMATION
  Report Type: 
  Country: None (occurrence: None)
  Receive Date: 20040308
  Receipt Date: 20040308
  Transmission Date: 20041129
  Serious: Yes (Death)
  Sender: FDA-Public Use
  Company Number: None

PATIENT
  Sex: Male
  Weight: 61.4624 kg

DRUGS (4)
  1. CISPLATIN [Suspect]
     Indication: NON-SMALL CELL LUNG CANCER
     Dosage: CISPLATIN 50MG/M2 (D1,8,29,30)IV
     Route: 042
     Dates: start: 20030929, end: 20031103
  2. ETOPOSIDE [Suspect]
     Indication: NON-SMALL CELL LUNG CANCER
     Dosage: 50MG/M2 (D1-5, 28-33) IV
     Route: 042
     Dates: start: 20030929, end: 20031103
  3. DOCETAXEL [Suspect]
     Indication: NON-SMALL CELL LUNG CANCER
     Dosage: 75MG/M2 (DAY 1)
     Dates: start: 20031223, end: 20040203
  4. RADIATION THERAPY [Concomitant]

REACTIONS (6)
  - EXSANGUINATION [None]
  - HAEMATEMESIS [None]
  - HAEMATOCRIT DECREASED [None]
  - HAEMOGLOBIN DECREASED [None]
  - HAEMOPTYSIS [None]
  - PLATELET COUNT DECREASED [None]
